FAERS Safety Report 10233264 (Version 1)
Quarter: 2014Q2

REPORT INFORMATION
  Report Type: Spontaneous
  Country: US (occurrence: US)
  Receive Date: 20140612
  Receipt Date: 20140612
  Transmission Date: 20141212
  Serious: No
  Sender: FDA-Public Use
  Company Number: US-PFIZER INC-2014159976

PATIENT
  Age: 46 Year
  Sex: Female
  Weight: 58.96 kg

DRUGS (1)
  1. SUTENT [Suspect]
     Indication: NEUROENDOCRINE CARCINOMA
     Dosage: 37.5 MG, DAILY
     Dates: start: 201405, end: 201405

REACTIONS (3)
  - Diarrhoea [Not Recovered/Not Resolved]
  - Flatulence [Not Recovered/Not Resolved]
  - Muscular weakness [Not Recovered/Not Resolved]
